FAERS Safety Report 8597860-X (Version None)
Quarter: 2012Q3

REPORT INFORMATION
  Report Type: 
  Country: None (occurrence: None)
  Receive Date: 20120816
  Receipt Date: 20120814
  Transmission Date: 20120928
  Serious: Yes (Other)
  Sender: FDA-Public Use
  Company Number: PHHY2012AR070363

PATIENT
  Sex: Female

DRUGS (2)
  1. DIOVAN HCT [Suspect]
     Indication: HYPERTENSION
     Dosage: 160 MG, DAILY
  2. DIOVAN [Suspect]
     Indication: BLOOD PRESSURE INCREASED
     Dosage: 1 DF,

REACTIONS (3)
  - NERVOUSNESS [None]
  - BLOOD PRESSURE INCREASED [None]
  - RENAL ATROPHY [None]
